FAERS Safety Report 9857380 (Version 1)
Quarter: 2014Q1

REPORT INFORMATION
  Report Type: Spontaneous
  Country: US (occurrence: US)
  Receive Date: 20140131
  Receipt Date: 20140131
  Transmission Date: 20141002
  Serious: Yes (Other)
  Sender: FDA-Public Use
  Company Number: US-JNJFOC-20131112816

PATIENT
  Age: 12 Year
  Sex: Female
  Weight: 43.09 kg

DRUGS (3)
  1. TYLENOL COLD MULTI-SYMPTOM DAY LIQUID [Suspect]
     Indication: PYREXIA
     Route: 048
     Dates: start: 20131018, end: 20131018
  2. TYLENOL COLD MULTI-SYMPTOM DAY LIQUID [Suspect]
     Indication: NASOPHARYNGITIS
     Route: 048
     Dates: start: 20131018, end: 20131018
  3. CHILDREN^S IBUPROFEN LIQUID [Concomitant]
     Indication: PYREXIA
     Route: 065

REACTIONS (5)
  - Hallucination, visual [Not Recovered/Not Resolved]
  - Malaise [Not Recovered/Not Resolved]
  - Abdominal pain upper [Not Recovered/Not Resolved]
  - Incorrect dose administered [Unknown]
  - Drug ineffective [Unknown]
